FAERS Safety Report 4772768-6 (Version None)
Quarter: 2005Q3

REPORT INFORMATION
  Report Type: 
  Country: None (occurrence: None)
  Receive Date: 20050919
  Receipt Date: 20050915
  Transmission Date: 20060218
  Serious: Yes (Other)
  Sender: FDA-Public Use
  Company Number: US-GLAXOSMITHKLINE-A0574436A

PATIENT
  Sex: Female

DRUGS (3)
  1. ADVAIR DISKUS 100/50 [Suspect]
     Indication: ASTHMA
     Route: 055
  2. ZYRTEC [Concomitant]
  3. THYROID TAB [Concomitant]

REACTIONS (2)
  - INCREASED TENDENCY TO BRUISE [None]
  - SKIN ATROPHY [None]
